FAERS Safety Report 8244342-0 (Version None)
Quarter: 2012Q1

REPORT INFORMATION
  Report Type: 
  Country: None (occurrence: None)
  Receive Date: 20120329
  Receipt Date: 20120326
  Transmission Date: 20120608
  Serious: Yes (Other)
  Sender: FDA-Public Use
  Company Number: US-PFIZER INC-2012005045

PATIENT
  Age: 84 Year
  Sex: Female
  Weight: 81.63 kg

DRUGS (1)
  1. LIPITOR [Suspect]
     Indication: CARDIAC DISORDER
     Dosage: UNK

REACTIONS (4)
  - COUGH [None]
  - CARDIAC DISORDER [None]
  - NASOPHARYNGITIS [None]
  - BLOOD CHOLESTEROL ABNORMAL [None]
